FAERS Safety Report 21771905 (Version 2)
Quarter: 2023Q1

REPORT INFORMATION
  Report Type: Spontaneous
  Country: ES (occurrence: None)
  Receive Date: 20221223
  Receipt Date: 20230207
  Transmission Date: 20230418
  Serious: Yes (Other)
  Sender: FDA-Public Use
  Company Number: 2022A409565

PATIENT

DRUGS (1)
  1. BENRALIZUMAB [Suspect]
     Active Substance: BENRALIZUMAB
     Route: 058

REACTIONS (1)
  - Thrombocytopenia [Unknown]
